FAERS Safety Report 6781840-0 (Version None)
Quarter: 2010Q2

REPORT INFORMATION
  Report Type: 
  Country: None (occurrence: None)
  Receive Date: 20100621
  Receipt Date: 20100615
  Transmission Date: 20101027
  Serious: Yes (Death, Other)
  Sender: FDA-Public Use
  Company Number: PHHY2010TH29441

PATIENT
  Sex: Female

DRUGS (2)
  1. GLEEVEC [Suspect]
     Dosage: 600 MG, UNK
     Route: 048
  2. GLEEVEC [Suspect]
     Dosage: 300 MG PER DAY
     Route: 048

REACTIONS (2)
  - BACTERIAL SEPSIS [None]
  - PANCYTOPENIA [None]
